FAERS Safety Report 15430451 (Version 1)
Quarter: 2018Q3

REPORT INFORMATION
  Report Type: Spontaneous
  Country: US (occurrence: US)
  Receive Date: 20180920
  Receipt Date: 20180920
  Transmission Date: 20181010
  Serious: No
  Sender: FDA-Public Use
  Company Number: None

PATIENT
  Age: 78 Year
  Sex: Female

DRUGS (1)
  1. CAPECITABINE TAB 150 MG [Suspect]
     Active Substance: CAPECITABINE
     Route: 048
     Dates: start: 201808

REACTIONS (7)
  - Stomatitis [None]
  - Gait disturbance [None]
  - Oral pain [None]
  - Pain of skin [None]
  - Hypophagia [None]
  - Skin irritation [None]
  - Lip pain [None]

NARRATIVE: CASE EVENT DATE: 20180919
